FAERS Safety Report 8259318-7 (Version None)
Quarter: 2012Q1

REPORT INFORMATION
  Report Type: 
  Country: None (occurrence: None)
  Receive Date: 20120327
  Receipt Date: 20081030
  Transmission Date: 20120608
  Serious: Yes (Hospitalization, Disabling, Other)
  Sender: FDA-Public Use
  Company Number: PHEH2008US07932

PATIENT
  Age: 53 Year
  Sex: Female
  Weight: 77.3 kg

DRUGS (3)
  1. SYNTHROID [Concomitant]
  2. XANAX [Concomitant]
  3. GLEEVEC [Suspect]
     Indication: CHRONIC MYELOID LEUKAEMIA
     Dosage: 400 MG, QD, ORAL
     Route: 048
     Dates: start: 20070604, end: 20080905

REACTIONS (6)
  - MIGRAINE [None]
  - VISUAL IMPAIRMENT [None]
  - FATIGUE [None]
  - LEFT VENTRICULAR DYSFUNCTION [None]
  - MULTIPLE GATED ACQUISITION SCAN [None]
  - EJECTION FRACTION ABNORMAL [None]
